APPROVED DRUG PRODUCT: MERCAPTOPURINE
Active Ingredient: MERCAPTOPURINE
Strength: 20MG/ML
Dosage Form/Route: SUSPENSION;ORAL
Application: A216418 | Product #001 | TE Code: AB
Applicant: HIKMA PHARMACEUTICALS USA INC
Approved: Feb 26, 2025 | RLD: No | RS: No | Type: RX